FAERS Safety Report 6390544-8 (Version None)
Quarter: 2009Q4

REPORT INFORMATION
  Report Type: 
  Country: None (occurrence: None)
  Receive Date: 20091005
  Receipt Date: 20091005
  Transmission Date: 20100525
  Serious: Yes (Death)
  Sender: FDA-Public Use
  Company Number: None

PATIENT
  Age: 77 Year
  Sex: Female
  Weight: 61.4 kg

DRUGS (1)
  1. EXJADE [Suspect]
     Indication: BLOOD IRON INCREASED
     Dosage: 1 PILL EACH DAY BY MOUTH, DISSOLVED IN WATER
     Route: 048
     Dates: start: 20090712, end: 20090719

REACTIONS (1)
  - RENAL FAILURE ACUTE [None]
